FAERS Safety Report 24203726 (Version 1)
Quarter: 2024Q3

REPORT INFORMATION
  Report Type: Spontaneous
  Country: RO (occurrence: RO)
  Receive Date: 20240813
  Receipt Date: 20240813
  Transmission Date: 20241017
  Serious: Yes (Other)
  Sender: SANOFI AVENTIS
  Company Number: None

PATIENT
  Age: 27 Year
  Sex: Male
  Weight: 65 kg

DRUGS (6)
  1. RIFAMPIN [Suspect]
     Active Substance: RIFAMPIN
     Indication: Osteomyelitis
     Dosage: 300 MG, QOD
     Route: 048
     Dates: start: 20240719, end: 20240722
  2. CIPROFLOXACIN [Concomitant]
     Active Substance: CIPROFLOXACIN
  3. DEXAMETHASONE [Concomitant]
     Active Substance: DEXAMETHASONE
  4. ACETAMINOPHEN [Concomitant]
     Active Substance: ACETAMINOPHEN
  5. OXACILIN [Concomitant]
  6. NEXIUM I.V. [Concomitant]
     Active Substance: ESOMEPRAZOLE SODIUM

REACTIONS (10)
  - Leukocytosis [Recovered/Resolved]
  - Henoch-Schonlein purpura [Recovered/Resolved]
  - Blood urea increased [Recovered/Resolved]
  - Serum sickness-like reaction [Recovered/Resolved]
  - Neutrophilia [Recovered/Resolved]
  - Nephritis [Recovered/Resolved]
  - Urine abnormality [Recovered/Resolved]
  - Eosinophilia [Recovered/Resolved]
  - Rash [Recovered/Resolved]
  - Pyrexia [Recovered/Resolved]

NARRATIVE: CASE EVENT DATE: 20240101
